FAERS Safety Report 5195921-9 (Version None)
Quarter: 2007Q1

REPORT INFORMATION
  Report Type: 
  Country: None (occurrence: None)
  Receive Date: 20070102
  Receipt Date: 20061220
  Transmission Date: 20070707
  Serious: Yes (Other)
  Sender: FDA-Public Use
  Company Number: HQWYE916322DEC06

PATIENT
  Sex: Female
  Weight: 60 kg

DRUGS (5)
  1. ENBREL [Suspect]
     Indication: RHEUMATOID ARTHRITIS
     Dates: start: 20050422, end: 20060925
  2. ENBREL [Suspect]
     Route: 058
     Dates: start: 20061218
  3. CORTICOSTEROID NOS [Concomitant]
     Route: 048
  4. DICLOFENAC SODIUM [Concomitant]
     Indication: ANALGESIC EFFECT
     Route: 048
  5. METHOTREXATE [Concomitant]
     Indication: RHEUMATOID ARTHRITIS
     Dosage: 15 ML, FREQUENCY NOT SPECIFIED
     Route: 030

REACTIONS (2)
  - MUSCULAR WEAKNESS [None]
  - THYMOMA [None]
